FAERS Safety Report 25961017 (Version 3)
Quarter: 2025Q4

REPORT INFORMATION
  Report Type: Spontaneous
  Country: US (occurrence: US)
  Receive Date: 20251027
  Receipt Date: 20251208
  Transmission Date: 20260118
  Serious: No
  Sender: ELI LILLY AND COMPANY
  Company Number: US-ELI_LILLY_AND_COMPANY-US202510022693

PATIENT
  Age: 78 Year
  Sex: Male

DRUGS (13)
  1. KISUNLA [Suspect]
     Active Substance: DONANEMAB-AZBT
     Indication: Dementia Alzheimer^s type
     Dosage: 350 MG, MONTHLY (1/M), 1ST INFUSION
     Route: 042
     Dates: start: 20250902
  2. KISUNLA [Suspect]
     Active Substance: DONANEMAB-AZBT
     Dosage: 350 MG, MONTHLY (1/M) 350 MG, (2ND INFUSION)
     Route: 042
     Dates: start: 20250930, end: 20250930
  3. KISUNLA [Suspect]
     Active Substance: DONANEMAB-AZBT
     Dosage: 350 MG, MONTHLY (1/M) (2ND INFUSION)
     Route: 042
     Dates: start: 20250930, end: 20250930
  4. KISUNLA [Suspect]
     Active Substance: DONANEMAB-AZBT
     Dosage: 1050 MG, MONTHLY (1/M) 3RD INFUSION
     Route: 042
     Dates: start: 20251103
  5. COLESTIPOL [Concomitant]
     Active Substance: COLESTIPOL
     Indication: Product used for unknown indication
     Dosage: 1 MG, UNKNOWN
     Route: 065
  6. TRELEGY ELLIPTA [Concomitant]
     Active Substance: FLUTICASONE FUROATE\UMECLIDINIUM BROMIDE\VILANTEROL TRIFENATATE
     Indication: Product used for unknown indication
     Dosage: UNK UNK, UNKNOWN, 10 MCG/62.5 MCG/25 MCG
     Route: 065
  7. SERTRALINE [Concomitant]
     Active Substance: SERTRALINE HYDROCHLORIDE
     Indication: Anxiety
     Dosage: 50 MG, UNKNOWN
     Route: 065
  8. MONTELUKAST [Concomitant]
     Active Substance: MONTELUKAST
     Indication: Product used for unknown indication
     Dosage: 10 MG, UNKNOWN
     Route: 065
  9. AMLODIPINE BESYLATE [Concomitant]
     Active Substance: AMLODIPINE BESYLATE
     Indication: Hypertension
     Dosage: 5 MG, UNKNOWN
     Route: 065
  10. DONEPEZIL [Concomitant]
     Active Substance: DONEPEZIL
     Indication: Dementia Alzheimer^s type
     Dosage: 5 MG, UNKNOWN
     Route: 065
  11. HYDROCHLOROTHIAZIDE\VALSARTAN [Concomitant]
     Active Substance: HYDROCHLOROTHIAZIDE\VALSARTAN
     Indication: Hypertension
     Dosage: UNK, UNKNOWN, 325/25 MG
     Route: 065
  12. ROSUVASTATIN [Concomitant]
     Active Substance: ROSUVASTATIN
     Indication: Hyperlipidaemia
     Dosage: UNK, UNKNOWN
     Route: 065
  13. PANTOPRAZOLE SODIUM [Concomitant]
     Active Substance: PANTOPRAZOLE SODIUM
     Indication: Product used for unknown indication
     Dosage: 40 MG, UNKNOWN
     Route: 065

REACTIONS (1)
  - Amyloid related imaging abnormality-microhaemorrhages and haemosiderin deposits [Recovering/Resolving]

NARRATIVE: CASE EVENT DATE: 20251016
